FAERS Safety Report 15881651 (Version 1)
Quarter: 2019Q1

REPORT INFORMATION
  Report Type: Spontaneous
  Country: DE (occurrence: DE)
  Receive Date: 20190128
  Receipt Date: 20190128
  Transmission Date: 20190417
  Serious: Yes (Death)
  Sender: FDA-Public Use
  Company Number: DE-PFIZER INC-2019034720

PATIENT
  Age: 62 Year
  Sex: Female
  Weight: 81 kg

DRUGS (6)
  1. CHLORPHENAMINE [Interacting]
     Active Substance: CHLORPHENIRAMINE MALEATE
     Indication: NASOPHARYNGITIS
     Route: 048
  2. IRBESARTAN HCT [Concomitant]
     Active Substance: HYDROCHLOROTHIAZIDE\IRBESARTAN
     Indication: HYPERTENSION
     Dosage: DAILY DOSE: 1 DF DOSAGE FORM EVERY DAYS FOR YEARS
     Route: 048
  3. METFORMIN [Concomitant]
     Active Substance: METFORMIN HYDROCHLORIDE
     Indication: TYPE 2 DIABETES MELLITUS
     Dosage: DAILY DOSE: 500 MG MILLGRAM(S) EVERY DAYS FOR YEARS
     Route: 048
  4. METOPROLOL SUCCINATE. [Concomitant]
     Active Substance: METOPROLOL SUCCINATE
     Indication: HYPERTENSION
     Dosage: DAILY DOSE: 47.5 MG MILLGRAM(S) EVERY DAYS FOR YEARS
     Route: 048
  5. CHLORPHENAMINE [Interacting]
     Active Substance: CHLORPHENIRAMINE MALEATE
     Indication: NASOPHARYNGITIS
  6. DOXEPIN HCL [Suspect]
     Active Substance: DOXEPIN HYDROCHLORIDE
     Indication: DEPRESSION
     Dosage: 50-0-100 MG
     Route: 048
     Dates: start: 1999

REACTIONS (6)
  - Drug interaction [Fatal]
  - Accidental overdose [Fatal]
  - Labelled drug-drug interaction medication error [Fatal]
  - Serotonin syndrome [Fatal]
  - Arrhythmia [Fatal]
  - Drug effect increased [Fatal]

NARRATIVE: CASE EVENT DATE: 20180317
